FAERS Safety Report 6559036-7 (Version None)
Quarter: 2010Q1

REPORT INFORMATION
  Report Type: 
  Country: None (occurrence: None)
  Receive Date: 20100129
  Receipt Date: 20100125
  Transmission Date: 20100710
  Serious: Yes (Death)
  Sender: FDA-Public Use
  Company Number: JP-ABBOTT-10P-087-0621881-00

PATIENT
  Sex: Female

DRUGS (8)
  1. HUMIRA [Suspect]
     Indication: RHEUMATOID ARTHRITIS
     Route: 058
     Dates: start: 20080701, end: 20090901
  2. TACROLIMUS [Concomitant]
     Indication: RHEUMATOID ARTHRITIS
     Route: 048
     Dates: start: 20080909, end: 20090119
  3. TACROLIMUS [Concomitant]
     Dates: start: 20090120, end: 20091023
  4. PREDNISOLONE [Concomitant]
     Indication: RHEUMATOID ARTHRITIS
     Route: 048
     Dates: start: 20090707, end: 20091023
  5. PREDNISOLONE [Concomitant]
     Route: 048
     Dates: start: 20091024, end: 20091026
  6. PREDNISOLONE [Concomitant]
     Route: 042
     Dates: start: 20091027
  7. PREDNISOLONE [Concomitant]
     Route: 048
     Dates: start: 20080308, end: 20090706
  8. H1N1 [Concomitant]
     Indication: DRUG USE FOR UNKNOWN INDICATION
     Dates: start: 20091201, end: 20091201

REACTIONS (9)
  - ACUTE PULMONARY OEDEMA [None]
  - ASPERGILLOSIS [None]
  - CHEST PAIN [None]
  - CYANOSIS [None]
  - DECREASED APPETITE [None]
  - MALAISE [None]
  - RENAL FAILURE [None]
  - RHEUMATOID ARTHRITIS [None]
  - VOMITING [None]
